FAERS Safety Report 8025707-9 (Version None)
Quarter: 2012Q1

REPORT INFORMATION
  Report Type: 
  Country: None (occurrence: None)
  Receive Date: 20120105
  Receipt Date: 20110118
  Transmission Date: 20120608
  Serious: No
  Sender: FDA-Public Use
  Company Number: US-ABBOTT-10P-163-0650420-00

PATIENT
  Sex: Female
  Weight: 59.02 kg

DRUGS (7)
  1. SYNTHROID [Suspect]
     Indication: HYPOTHYROIDISM
     Route: 048
     Dates: start: 19800101
  2. TRILIPIX [Suspect]
     Indication: BLOOD CHOLESTEROL INCREASED
     Dates: start: 20100501, end: 20100602
  3. BENICAR [Suspect]
     Indication: HYPERTENSION
     Dosage: 20/12.5   0.5 DAILY
     Route: 048
  4. CALCIUM ACETATE [Concomitant]
     Indication: MINERAL SUPPLEMENTATION
  5. VITAMIN D [Concomitant]
     Indication: HYPOVITAMINOSIS
     Dosage: AT NIGHT
     Route: 048
  6. FISH OIL [Concomitant]
     Indication: PRODUCT USED FOR UNKNOWN INDICATION
     Dosage: TWO AT BEDTIME
     Route: 048
  7. BENICAR [Suspect]
     Dosage: 20/12.5   1 DAILY
     Dates: start: 20100501

REACTIONS (18)
  - HEPATIC ENZYME INCREASED [None]
  - ASTHENIA [None]
  - PRURITUS [None]
  - MUSCULOSKELETAL STIFFNESS [None]
  - HYPERTENSION [None]
  - NAUSEA [None]
  - JOINT STIFFNESS [None]
  - AGITATION [None]
  - DRUG HYPERSENSITIVITY [None]
  - INSOMNIA [None]
  - NIGHT SWEATS [None]
  - AORTIC DILATATION [None]
  - CHEST PAIN [None]
  - RASH [None]
  - BLOOD PRESSURE DECREASED [None]
  - SNEEZING [None]
  - COUGH [None]
  - POLLAKIURIA [None]
